FAERS Safety Report 11258388 (Version 1)
Quarter: 2015Q3

REPORT INFORMATION
  Report Type: Spontaneous
  Country: IN (occurrence: IN)
  Receive Date: 20150710
  Receipt Date: 20150710
  Transmission Date: 20151125
  Serious: Yes (Hospitalization)
  Sender: FDA-Public Use
  Company Number: IN-COREPHARMA LLC-2015COR00142

PATIENT
  Age: 38 Year
  Sex: Female

DRUGS (2)
  1. PHENOBARBITONE [Suspect]
     Active Substance: PHENOBARBITAL
     Indication: GENERALISED TONIC-CLONIC SEIZURE
     Dosage: 30 MG, UNK
     Route: 048
  2. PHENYTOIN. [Suspect]
     Active Substance: PHENYTOIN
     Indication: GENERALISED TONIC-CLONIC SEIZURE
     Dosage: 100 MG, UNK
     Route: 048

REACTIONS (3)
  - Intentional overdose [Unknown]
  - Psychogenic seizure [Recovered/Resolved]
  - Toxicity to various agents [Recovered/Resolved]
